FAERS Safety Report 9911521 (Version 4)
Quarter: 2014Q2

REPORT INFORMATION
  Report Type: Report from Study
  Country: JP (occurrence: JP)
  Receive Date: 20140219
  Receipt Date: 20140528
  Transmission Date: 20141212
  Serious: Yes (Death, Life-Threatening, Hospitalization, Other)
  Sender: FDA-Public Use
  Company Number: PHHY2011JP36371

PATIENT
  Age: 71 Year
  Sex: Male
  Weight: 64 kg

DRUGS (32)
  1. ICL670A [Suspect]
     Indication: MYELODYSPLASTIC SYNDROME
     Dosage: 250 MG DAILY
     Route: 048
     Dates: start: 20080804, end: 20080831
  2. ICL670A [Suspect]
     Indication: IRON OVERLOAD
     Dosage: 500 MG DAILY
     Route: 048
     Dates: start: 20080901, end: 20090330
  3. ICL670A [Suspect]
     Dosage: 625 MG DAILY
     Route: 048
     Dates: start: 20090331, end: 20090608
  4. ICL670A [Suspect]
     Dosage: 750 MG DAILY
     Route: 048
     Dates: start: 20090609, end: 20090817
  5. ICL670A [Suspect]
     Dosage: 500 MG DAILY
     Route: 048
     Dates: start: 20090914, end: 20091012
  6. ICL670A [Suspect]
     Dosage: 500 MG DAILY
     Route: 048
     Dates: start: 20091214, end: 20100311
  7. ICL670A [Suspect]
     Dosage: 250 MG DAILY
     Route: 048
     Dates: start: 20100312, end: 20100520
  8. ICL670A [Suspect]
     Dosage: 500 MG DAILY
     Route: 048
     Dates: start: 20100521, end: 20100929
  9. ICL670A [Suspect]
     Dosage: 750 MG DAILY
     Route: 048
     Dates: start: 20100930, end: 20110106
  10. ICL670A [Suspect]
     Dosage: 875 MG DAILY
     Route: 048
     Dates: start: 20110107, end: 20110206
  11. ICL670A [Suspect]
     Dosage: 1000 MG, DAILY
     Route: 048
     Dates: start: 20110207, end: 20111011
  12. ICL670A [Suspect]
     Dosage: 1250 MG, DAILY
     Route: 048
     Dates: start: 20111012, end: 20120217
  13. ICL670A [Suspect]
     Dosage: 1000 MG, DAILY
     Route: 048
     Dates: start: 20120218, end: 20120705
  14. ICL670A [Suspect]
     Dosage: 1250 MG, DAILY
     Route: 048
     Dates: start: 20120706, end: 20120927
  15. ICL670A [Suspect]
     Dosage: 1500 MG, DAILY
     Route: 048
     Dates: start: 20120928, end: 20121011
  16. ICL670A [Suspect]
     Dosage: 1250 MG, DAILY
     Route: 048
     Dates: start: 20121012
  17. LASIX [Suspect]
     Indication: REFRACTORY ANAEMIA WITH AN EXCESS OF BLASTS
     Dosage: 20 MG, QD
     Route: 048
  18. LASIX [Suspect]
     Indication: CARDIAC FAILURE
     Dosage: 30 MG, QD
     Route: 048
  19. LASIX [Suspect]
     Dosage: 10 MG, DAILY
     Dates: start: 20100804, end: 20110803
  20. LASIX [Suspect]
     Dosage: 40 MG, DAILY
     Route: 048
     Dates: start: 20110804
  21. GASTER [Concomitant]
     Dosage: 20 MG, UNK
     Route: 048
  22. ALLEGRA [Concomitant]
     Indication: PROPHYLAXIS
     Dosage: 120 MG, UNK
     Route: 048
  23. ALLEGRA [Concomitant]
     Dosage: 120 MG, UNK
     Route: 048
  24. ZYLORIC [Concomitant]
     Indication: PROPHYLAXIS
     Dosage: 100 MG, UNK
     Route: 048
     Dates: start: 20100804
  25. JUZENTAIHOTO [Concomitant]
     Indication: REFRACTORY ANAEMIA WITH AN EXCESS OF BLASTS
     Dosage: 7.5 G, UNK
     Route: 048
     Dates: start: 20100804
  26. JUZENTAIHOTO [Concomitant]
     Dosage: 7.5 G, UNK
     Route: 048
  27. GASTER D [Concomitant]
     Dosage: 20 MG, UNK
     Route: 048
  28. BASEN [Concomitant]
     Dosage: 0.4 MG, DAILY
     Route: 048
     Dates: start: 20100804, end: 20110803
  29. AMARYL [Concomitant]
     Dosage: 1 MG, DAILY
     Route: 048
     Dates: start: 20100804, end: 20110803
  30. TAKEPRON [Concomitant]
     Indication: PROPHYLAXIS
     Dosage: 15 MG, UNK
     Route: 048
     Dates: start: 20100804, end: 20120803
  31. VIDAZA [Concomitant]
     Indication: REFRACTORY ANAEMIA WITH AN EXCESS OF BLASTS
     Dosage: 75 MG/M2, UNK
     Dates: start: 20120126, end: 20120803
  32. DESFERAL [Concomitant]
     Indication: IRON OVERLOAD
     Dosage: 1000 MG, UNK
     Route: 030
     Dates: start: 200704, end: 20080707

REACTIONS (10)
  - Condition aggravated [Fatal]
  - Myelodysplastic syndrome [Fatal]
  - Pneumonia fungal [Fatal]
  - Neutrophil count decreased [Not Recovered/Not Resolved]
  - Diabetes mellitus [Not Recovered/Not Resolved]
  - Cardiac failure [Recovering/Resolving]
  - Thrombocytopenia [Not Recovered/Not Resolved]
  - Serum ferritin increased [Unknown]
  - Red blood cell count decreased [Unknown]
  - Hyperuricaemia [Recovering/Resolving]
